FAERS Safety Report 7896989-9 (Version None)
Quarter: 2011Q4

REPORT INFORMATION
  Report Type: 
  Country: None (occurrence: None)
  Receive Date: 20111104
  Receipt Date: 20111104
  Transmission Date: 20120403
  Serious: Yes (Other)
  Sender: FDA-Public Use
  Company Number: None

PATIENT
  Sex: Female

DRUGS (1)
  1. TRIBENZOR [Suspect]
     Dosage: 40MG/ 10MG/ 25MG 1 X A DAY  ONLY USE 1/4 TAB 10MG/ 2.5MG/ 6.25MG

REACTIONS (17)
  - RESTLESSNESS [None]
  - NAUSEA [None]
  - MUSCLE FATIGUE [None]
  - HEART RATE INCREASED [None]
  - ASTHENIA [None]
  - URINE OUTPUT DECREASED [None]
  - SOMNOLENCE [None]
  - FATIGUE [None]
  - CONVULSION [None]
  - ANURIA [None]
  - VOMITING [None]
  - DRY MOUTH [None]
  - THIRST [None]
  - DIZZINESS [None]
  - MYALGIA [None]
  - SYNCOPE [None]
  - CONFUSIONAL STATE [None]
